FAERS Safety Report 6757062-6 (Version None)
Quarter: 2010Q2

REPORT INFORMATION
  Report Type: 
  Country: None (occurrence: None)
  Receive Date: 20100604
  Receipt Date: 20100528
  Transmission Date: 20101027
  Serious: Yes (Hospitalization)
  Sender: FDA-Public Use
  Company Number: DE-AMGEN-KDC406521

PATIENT
  Sex: Female

DRUGS (17)
  1. NEULASTA [Suspect]
     Indication: CHEMOTHERAPY
     Route: 058
     Dates: start: 20100403, end: 20100409
  2. ADRIAMYCIN PFS [Suspect]
     Route: 042
  3. CYCLOPHOSPHAMIDE [Suspect]
     Route: 042
  4. UNSPECIFIED ANTINEOPLASTIC AGENT [Concomitant]
  5. ZYLORIC [Concomitant]
  6. DELIX [Concomitant]
  7. CIPRALEX [Concomitant]
  8. TORSEMIDE [Concomitant]
  9. CONCOR [Concomitant]
  10. SPIRIVA [Concomitant]
  11. DOXEPIN HCL [Concomitant]
  12. VINCRISTINE [Concomitant]
     Route: 040
  13. PREDNISONE [Concomitant]
     Route: 048
  14. RITUXIMAB [Concomitant]
     Route: 042
  15. GRANISETRON [Concomitant]
     Route: 042
  16. CLEMASTINE FUMARATE [Concomitant]
  17. RANITIDINE [Concomitant]

REACTIONS (1)
  - NEUTROPENIA [None]
